FAERS Safety Report 9274672 (Version 1)
Quarter: 2013Q2

REPORT INFORMATION
  Report Type: Spontaneous
  Country: FR (occurrence: FR)
  Receive Date: 20130507
  Receipt Date: 20130507
  Transmission Date: 20140414
  Serious: Yes (Other)
  Sender: FDA-Public Use
  Company Number: FR-AMGEN-FRASP2013030724

PATIENT
  Age: 84 Year
  Sex: Male

DRUGS (2)
  1. NEULASTA [Suspect]
     Indication: PRODUCT USED FOR UNKNOWN INDICATION
     Dosage: 0.2857 MG (6MG, 1 IN 3 WEEKS)
     Route: 058
     Dates: start: 20121221
  2. TAXOTERE [Concomitant]
     Dosage: UNK
     Route: 042

REACTIONS (2)
  - Arthralgia [Recovering/Resolving]
  - Malaise [Recovering/Resolving]
